FAERS Safety Report 13896489 (Version 5)
Quarter: 2018Q3

REPORT INFORMATION
  Report Type: Spontaneous
  Country: US (occurrence: US)
  Receive Date: 20170823
  Receipt Date: 20180912
  Transmission Date: 20181010
  Serious: Yes (Other)
  Sender: FDA-Public Use
  Company Number: US-BAYER-2017-159301

PATIENT
  Age: 27 Year
  Sex: Female
  Weight: 97.15 kg

DRUGS (1)
  1. MIRENA [Suspect]
     Active Substance: LEVONORGESTREL
     Indication: CONTRACEPTION
     Dosage: 20 MCG/24HR, CONT
     Route: 015
     Dates: start: 20120813

REACTIONS (7)
  - Device difficult to use [None]
  - Procedural haemorrhage [None]
  - Polymenorrhoea [None]
  - Complication of device removal [None]
  - Device breakage [None]
  - Procedural pain [None]
  - Embedded device [None]

NARRATIVE: CASE EVENT DATE: 20170808
